FAERS Safety Report 4752801-8 (Version None)
Quarter: 2005Q3

REPORT INFORMATION
  Report Type: 
  Country: None (occurrence: None)
  Receive Date: 20050823
  Receipt Date: 20050321
  Transmission Date: 20060218
  Serious: Yes (Other)
  Sender: FDA-Public Use
  Company Number: 2005048117

PATIENT
  Age: 62 Year
  Sex: Female

DRUGS (6)
  1. NORVASC [Suspect]
     Indication: HYPERTENSION
     Dosage: 10 MG (10 MG, 1 IN 1 D), ORAL
     Route: 048
     Dates: end: 20050319
  2. LISINOPRIL [Concomitant]
  3. SIMVASTATIN [Concomitant]
  4. SOTALOL HCL [Concomitant]
  5. ALLOPURINOL [Concomitant]
  6. ACETYLSALICYLIC ACID SRT [Concomitant]

REACTIONS (3)
  - DYSPNOEA [None]
  - HYPOTENSION [None]
  - WHEEZING [None]
